FAERS Safety Report 9209523 (Version 1)
Quarter: 2013Q1

REPORT INFORMATION
  Report Type: Spontaneous
  Country: US (occurrence: None)
  Receive Date: 20120820
  Receipt Date: 20120820
  Transmission Date: 20140127
  Serious: No
  Sender: FDA-Public Use
  Company Number: 1000030367

PATIENT
  Age: 41 Year
  Sex: Female

DRUGS (3)
  1. VIBRYD [Suspect]
     Indication: DEPRESSION
     Dosage: 10MG (10MG, 1 IN 1 D) ORAL
     Route: 048
     Dates: start: 201204, end: 201204
  2. YASMIN (DROSPIRENONE, ETHINYLESTRADIOL) (DROSPIRENONE, ETHINYLESTRADIOL) [Concomitant]
  3. ZONEGRAN (ZONISAMIDE) (ZONISAMIDE) [Concomitant]

REACTIONS (5)
  - Diarrhoea [None]
  - Flatulence [None]
  - Anxiety [None]
  - Weight increased [None]
  - Libido decreased [None]
